FAERS Safety Report 20070742 (Version 7)
Quarter: 2022Q3

REPORT INFORMATION
  Report Type: Spontaneous
  Country: JP (occurrence: JP)
  Receive Date: 20211115
  Receipt Date: 20220912
  Transmission Date: 20221027
  Serious: Yes (Life-Threatening, Hospitalization, Other)
  Sender: FDA-Public Use
  Company Number: JP-KYOWAKIRIN-2021AKK018880

PATIENT

DRUGS (21)
  1. ISTRADEFYLLINE [Suspect]
     Active Substance: ISTRADEFYLLINE
     Indication: Parkinson^s disease
     Dosage: 60 MG
     Route: 048
     Dates: start: 20210611
  2. ISTRADEFYLLINE [Suspect]
     Active Substance: ISTRADEFYLLINE
     Dosage: 20 MG, QD
     Route: 048
     Dates: start: 201811
  3. ISTRADEFYLLINE [Suspect]
     Active Substance: ISTRADEFYLLINE
     Dosage: 40 MG
     Route: 048
     Dates: start: 202101
  4. CARBIDOPA\LEVODOPA [Concomitant]
     Active Substance: CARBIDOPA\LEVODOPA
     Indication: Parkinson^s disease
     Dosage: 495 MG
     Route: 048
  5. CARBIDOPA\LEVODOPA [Concomitant]
     Active Substance: CARBIDOPA\LEVODOPA
     Dosage: LEVODOPA AND CARBIDOPA WERE GRADUALLY INCREASED
     Route: 048
     Dates: start: 2016
  6. CARBIDOPA\LEVODOPA [Concomitant]
     Active Substance: CARBIDOPA\LEVODOPA
     Dosage: FROM THE 3RD DAY OF HOSPITALIZATION, 300 MG OF LEVODOPA/30 MG OF CARBIDOPA
     Route: 048
     Dates: start: 2016
  7. CARBIDOPA\LEVODOPA [Concomitant]
     Active Substance: CARBIDOPA\LEVODOPA
     Dosage: 400 MG OF LEVODOPA/40 MG OF CARBIDOPA
     Route: 048
     Dates: start: 2016
  8. CARBIDOPA\LEVODOPA [Concomitant]
     Active Substance: CARBIDOPA\LEVODOPA
     Dosage: FROM DAY 18 OF HOSPITALIZATION, 450 MG OF LEVODOPA/45 MG OF CARBIDOPA
     Route: 048
     Dates: start: 2016
  9. CARBIDOPA\LEVODOPA [Concomitant]
     Active Substance: CARBIDOPA\LEVODOPA
     Dosage: UNK
     Route: 048
     Dates: start: 2016
  10. ENTACAPONE [Concomitant]
     Active Substance: ENTACAPONE
     Indication: Parkinson^s disease
     Dosage: 500 MG
     Route: 048
     Dates: start: 2018
  11. ENTACAPONE [Concomitant]
     Active Substance: ENTACAPONE
     Dosage: 400 MG
     Route: 048
     Dates: start: 2018
  12. ENTACAPONE [Concomitant]
     Active Substance: ENTACAPONE
     Dosage: FROM DAY 18 OF HOSPITALIZATION, 500 MG OF ENTACAPONE
     Route: 048
     Dates: start: 2018
  13. ROPINIROLE [Concomitant]
     Active Substance: ROPINIROLE
     Indication: Parkinson^s disease
     Dosage: 8 MG
     Route: 048
  14. ROPINIROLE [Concomitant]
     Active Substance: ROPINIROLE
     Dosage: UNK
     Route: 048
     Dates: start: 201407
  15. ROPINIROLE [Concomitant]
     Active Substance: ROPINIROLE
     Dosage: GRADUALLY INCREASED
     Route: 048
     Dates: start: 2016
  16. AZILECT [Concomitant]
     Active Substance: RASAGILINE MESYLATE
     Indication: Parkinson^s disease
     Dosage: 0.5 MG, QD
     Route: 048
     Dates: start: 202011
  17. REQUIP [Concomitant]
     Active Substance: ROPINIROLE HYDROCHLORIDE
     Indication: Parkinson^s disease
     Dosage: 8 MG, QD
     Route: 048
     Dates: start: 201412
  18. STALEVO [Concomitant]
     Active Substance: CARBIDOPA\ENTACAPONE\LEVODOPA
     Indication: Parkinson^s disease
     Dosage: 100 MG, QID
     Route: 048
     Dates: start: 201811
  19. AMBROXOL HYDROCHLORIDE [Concomitant]
     Active Substance: AMBROXOL HYDROCHLORIDE
     Indication: Product used for unknown indication
     Dosage: UNK
     Route: 065
  20. ALFACALCIDOL [Concomitant]
     Active Substance: ALFACALCIDOL
     Indication: Product used for unknown indication
     Dosage: UNK
     Route: 065
  21. ROTIGOTINE [Concomitant]
     Active Substance: ROTIGOTINE
     Indication: Parkinson^s disease
     Dosage: ROTIGOTINE TRANSDERMAL PATCHES AT 4.5 MG WERE ADDED FROM THE 15TH DAY OF HOSPITALIZATION
     Route: 062

REACTIONS (2)
  - Parkinsonism hyperpyrexia syndrome [Recovered/Resolved]
  - Intentional overdose [Unknown]

NARRATIVE: CASE EVENT DATE: 20210611
